FAERS Safety Report 8164461-7 (Version None)
Quarter: 2012Q1

REPORT INFORMATION
  Report Type: 
  Country: None (occurrence: None)
  Receive Date: 20120224
  Receipt Date: 20120213
  Transmission Date: 20120608
  Serious: Yes (Death, Hospitalization, Other)
  Sender: FDA-Public Use
  Company Number: DE-COVIDIEN/TYCO HEALTHCARE/MALLINCKRODT-T201200642

PATIENT
  Age: 81 Year
  Sex: Male
  Weight: 68 kg

DRUGS (18)
  1. FUROSEMID                          /00032601/ [Concomitant]
     Indication: OEDEMA
     Dosage: UNK, QD
     Route: 048
     Dates: start: 20091229
  2. HALDOL [Suspect]
     Indication: NAUSEA
     Dosage: UNK
     Route: 048
     Dates: start: 20091125, end: 20091229
  3. LYRICA [Concomitant]
     Indication: PAIN
     Dosage: UNK
     Route: 065
     Dates: start: 20091125, end: 20091229
  4. PAROXETINE [Concomitant]
     Indication: PALLIATIVE CARE
     Dosage: UNK
     Dates: start: 20091125, end: 20091229
  5. KEVATRIL [Concomitant]
     Indication: NAUSEA
     Dosage: UNK
     Route: 065
     Dates: start: 20091217, end: 20091229
  6. ZOLADEX [Concomitant]
     Dosage: UNK
     Route: 065
     Dates: start: 20090801
  7. PALLADONE [Suspect]
     Indication: PAIN
     Dosage: 26 UG, QID
     Route: 048
     Dates: start: 20091125, end: 20091229
  8. METAMIZOLE [Concomitant]
     Indication: PAIN
     Dosage: UNK
     Route: 065
     Dates: start: 20091125, end: 20091229
  9. OMEPRAZOLE [Concomitant]
     Indication: GASTRITIS PROPHYLAXIS
     Dosage: UNK
     Route: 065
     Dates: start: 20091125
  10. ZOMETA [Concomitant]
     Dosage: UNK
     Route: 065
     Dates: start: 20080801
  11. LORAZEPAM [Concomitant]
     Indication: INSOMNIA
     Dosage: UNK
     Route: 065
     Dates: start: 20091213, end: 20091217
  12. PREDNISONE TAB [Concomitant]
     Indication: PROSTATE CANCER
     Dosage: 5 MG, BID
     Route: 048
     Dates: start: 20091201, end: 20100111
  13. EXALGO [Suspect]
     Indication: PAIN
     Dosage: 32 MG, QD
     Route: 048
     Dates: start: 20091213, end: 20091229
  14. DURAGESIC-100 [Suspect]
     Indication: PAIN
     Dosage: UNK
     Route: 062
     Dates: start: 20091229
  15. MOVICOL                            /01625101/ [Concomitant]
     Indication: CONSTIPATION
     Dosage: UNK
     Route: 065
     Dates: start: 20091125
  16. MCP                                /00041901/ [Concomitant]
     Indication: NAUSEA
     Dosage: UNK
     Route: 065
     Dates: start: 20091217
  17. SUNITINIB MALATE [Concomitant]
     Indication: PROSTATE CANCER
     Dosage: 37.5 MG, QD
     Route: 048
     Dates: start: 20091217, end: 20100107
  18. SCOPODERM                          /00008701/ [Concomitant]
     Dosage: UNK, QD
     Route: 048
     Dates: start: 20091229

REACTIONS (4)
  - PROSTATE CANCER [None]
  - HEPATOTOXICITY [None]
  - DEHYDRATION [None]
  - TOXICITY TO VARIOUS AGENTS [None]
